FAERS Safety Report 8896834 (Version 1)
Quarter: 2012Q4

REPORT INFORMATION
  Report Type: Spontaneous
  Country: US (occurrence: None)
  Receive Date: 20121107
  Receipt Date: 20121107
  Transmission Date: 20130627
  Serious: No
  Sender: FDA-Public Use
  Company Number: None

PATIENT

DRUGS (2)
  1. ACETAMINOPHEN [Suspect]
     Dates: start: 20121008, end: 20121008
  2. IBUPROFEN [Suspect]

REACTIONS (2)
  - Vomiting [None]
  - Product label confusion [None]
